FAERS Safety Report 21044346 (Version 2)
Quarter: 2022Q3

REPORT INFORMATION
  Report Type: Spontaneous
  Country: SE (occurrence: SE)
  Receive Date: 20220705
  Receipt Date: 20220707
  Transmission Date: 20221027
  Serious: Yes (Life-Threatening)
  Sender: FDA-Public Use
  Company Number: None

PATIENT
  Age: 66 Year
  Sex: Male

DRUGS (3)
  1. ENALAPRIL [Interacting]
     Active Substance: ENALAPRIL
     Indication: Product used for unknown indication
     Dosage: 20 MG, QD (20 MG 1 TABLETT 1 GANG PER DAG)
     Route: 065
     Dates: start: 20171229, end: 20220517
  2. ALTEPLASE [Interacting]
     Active Substance: ALTEPLASE
     Indication: Cerebrovascular accident
     Dosage: 8 ML (MG) ENGANGSDOS, 75 ML/H (INFUSION)
     Route: 065
     Dates: start: 20220517, end: 20220517
  3. ALTEPLASE [Interacting]
     Active Substance: ALTEPLASE
     Indication: Thrombolysis
     Dosage: UNK
     Route: 065

REACTIONS (2)
  - Drug interaction [Recovered/Resolved]
  - Angioedema [Recovered/Resolved]

NARRATIVE: CASE EVENT DATE: 20220517
